FAERS Safety Report 4626558-5 (Version None)
Quarter: 2005Q1

REPORT INFORMATION
  Report Type: 
  Country: None (occurrence: None)
  Receive Date: 20050330
  Receipt Date: 20050314
  Transmission Date: 20050727
  Serious: Yes (Hospitalization, Other)
  Sender: FDA-Public Use
  Company Number: USA050393168

PATIENT
  Age: 87 Year
  Sex: Female

DRUGS (5)
  1. FORTEO [Suspect]
     Indication: OSTEOPOROSIS
     Dates: start: 20030801, end: 20050309
  2. PREDNISONE [Concomitant]
  3. SYNTHROID [Concomitant]
  4. MOBIC [Concomitant]
  5. REMERON (MIRTAZAOINE ORIFARM) [Concomitant]

REACTIONS (1)
  - PERFORATED ULCER [None]
